FAERS Safety Report 10353863 (Version 3)
Quarter: 2014Q3

REPORT INFORMATION
  Report Type: Report from Study
  Country: JP (occurrence: JP)
  Receive Date: 20140731
  Receipt Date: 20140930
  Transmission Date: 20150326
  Serious: Yes (Death, Life-Threatening, Other)
  Sender: FDA-Public Use
  Company Number: JP-009507513-1403JPN013393

PATIENT
  Age: 65 Year
  Sex: Male
  Weight: 49 kg

DRUGS (11)
  1. TEMOZOLOMIDE [Suspect]
     Active Substance: TEMOZOLOMIDE
     Indication: GLIOBLASTOMA MULTIFORME
     Dosage: 200 MG/SQM, QD (STRENGTH:100 MG)
     Route: 041
     Dates: start: 20120116, end: 20120120
  2. TEMODAL [Suspect]
     Active Substance: TEMOZOLOMIDE
     Indication: GLIOBLASTOMA MULTIFORME
     Dosage: DAILY DOSAGE UNKNOWN
     Route: 048
     Dates: start: 20110613, end: 20111216
  3. PREDNISOLONE. [Concomitant]
     Active Substance: PREDNISOLONE
     Dosage: DAILY DOSAGE UNKNOWN
     Route: 048
     Dates: start: 20120125, end: 20120417
  4. LANSOPRAZOLE. [Concomitant]
     Active Substance: LANSOPRAZOLE
     Indication: PROPHYLAXIS
     Dosage: DAYLY DOSAGE UNKNOWN
     Route: 048
     Dates: start: 20111228, end: 20120417
  5. EXCEGRAN [Concomitant]
     Active Substance: ZONISAMIDE
     Dosage: DAILY DOSAGE UNKNOWN
     Route: 048
     Dates: end: 20120417
  6. DECADRON (DEXAMETHASONE SODIUM PHOSPHATE) [Concomitant]
     Active Substance: DEXAMETHASONE SODIUM PHOSPHATE
     Dosage: DAILY DOSAGE UNKNOWN
     Route: 041
     Dates: start: 20120116, end: 20120316
  7. NASEA [Concomitant]
     Active Substance: RAMOSETRON HYDROCHLORIDE
     Dosage: DAILY DOSAGE UNKNOWN
     Route: 041
     Dates: start: 20120116, end: 20120316
  8. TEMOZOLOMIDE [Suspect]
     Active Substance: TEMOZOLOMIDE
     Dosage: 200 MG/SQM, QD (STRENGTH:100 MG)
     Route: 041
     Dates: start: 20120213, end: 20120217
  9. LYRICA [Concomitant]
     Active Substance: PREGABALIN
     Indication: PROPHYLAXIS
     Dosage: DAILY DOSAGE UNKNOWN
     Route: 048
     Dates: end: 20120417
  10. TEMOZOLOMIDE [Suspect]
     Active Substance: TEMOZOLOMIDE
     Dosage: 200 MG/SQM, QD (STRENGTH:100 MG)
     Route: 041
     Dates: start: 20120312, end: 20120316
  11. BAKTAR [Concomitant]
     Active Substance: SULFAMETHOXAZOLE\TRIMETHOPRIM
     Indication: ANTIFUNGAL PROPHYLAXIS
     Dosage: DAILY DOSAGE UNKNOWN
     Route: 048
     Dates: end: 20120417

REACTIONS (5)
  - Hyperkalaemia [Recovered/Resolved]
  - Disease progression [Fatal]
  - Lymphocyte count decreased [Recovered/Resolved]
  - Lymphocyte count decreased [Not Recovered/Not Resolved]
  - Pneumonia [Not Recovered/Not Resolved]

NARRATIVE: CASE EVENT DATE: 20120124
